FAERS Safety Report 5312129-4 (Version None)
Quarter: 2007Q2

REPORT INFORMATION
  Report Type: 
  Country: None (occurrence: None)
  Receive Date: 20070430
  Receipt Date: 20060904
  Transmission Date: 20071010
  Serious: No
  Sender: FDA-Public Use
  Company Number: 2006UW17334

PATIENT
  Age: 49 Year
  Sex: Female

DRUGS (4)
  1. NEXIUM [Suspect]
     Route: 048
  2. PEPTO BISMOL [Concomitant]
  3. PROTONIX [Concomitant]
  4. PREVACID [Concomitant]

REACTIONS (4)
  - ANOREXIA [None]
  - ILL-DEFINED DISORDER [None]
  - NAUSEA [None]
  - VOMITING [None]
